FAERS Safety Report 9451733 (Version 1)
Quarter: 2013Q3

REPORT INFORMATION
  Report Type: Spontaneous
  Country: IT (occurrence: IT)
  Receive Date: 20130812
  Receipt Date: 20130812
  Transmission Date: 20140515
  Serious: Yes (Other)
  Sender: FDA-Public Use
  Company Number: IT-009507513-1308ITA001584

PATIENT
  Age: 62 Year
  Sex: Female
  Weight: 55 kg

DRUGS (3)
  1. BRIDION [Suspect]
     Indication: GENERAL ANAESTHESIA
     Dosage: 100 MG TOTAL ADMINISTRATION
     Route: 042
     Dates: start: 20130625, end: 20130625
  2. PROPOFOL B BRAUN [Concomitant]
     Dosage: 150MG, TOTAL
     Route: 042
     Dates: start: 20130625, end: 20130625
  3. FENTANEST [Concomitant]
     Dosage: 0.3 MG
     Route: 042
     Dates: end: 2013

REACTIONS (1)
  - Injection site rash [Recovered/Resolved]
